FAERS Safety Report 12378153 (Version 2)
Quarter: 2016Q2

REPORT INFORMATION
  Report Type: Spontaneous
  Country: US (occurrence: US)
  Receive Date: 20160517
  Receipt Date: 20160617
  Transmission Date: 20160815
  Serious: Yes (Other)
  Sender: FDA-Public Use
  Company Number: US-BAYER-2016-091330

PATIENT
  Age: 33 Year
  Sex: Female

DRUGS (2)
  1. MIRENA [Suspect]
     Active Substance: LEVONORGESTREL
     Indication: CONTRACEPTION
     Dosage: 20 MCG/24HR, CONT
     Route: 015
     Dates: start: 2002
  2. MIRENA [Suspect]
     Active Substance: LEVONORGESTREL
     Indication: CONTRACEPTION
     Dosage: 20 MCG/24HR, CONT
     Route: 015
     Dates: start: 20150410

REACTIONS (17)
  - Uterine pain [Not Recovered/Not Resolved]
  - Joint swelling [None]
  - Seizure [None]
  - Genital infection female [Not Recovered/Not Resolved]
  - Alopecia [None]
  - Muscle spasms [None]
  - Seizure [None]
  - Road traffic accident [None]
  - Vaginal abscess [None]
  - Weight decreased [None]
  - Tremor [None]
  - Tongue biting [None]
  - Furuncle [None]
  - Device dislocation [None]
  - Pain in extremity [None]
  - Seizure [None]
  - Pain [None]

NARRATIVE: CASE EVENT DATE: 2002
